FAERS Safety Report 10525859 (Version 2)
Quarter: 2014Q4

REPORT INFORMATION
  Report Type: Report from Study
  Country: MX (occurrence: MX)
  Receive Date: 20141017
  Receipt Date: 20141021
  Transmission Date: 20150528
  Serious: Yes (Other)
  Sender: FDA-Public Use
  Company Number: PHHY2014MX135636

PATIENT
  Age: 67 Year
  Sex: Male

DRUGS (3)
  1. PRAZOSIN [Concomitant]
     Active Substance: PRAZOSIN
     Indication: BLOOD PRESSURE ABNORMAL
     Dosage: 1 UKN, QD
     Route: 065
  2. DIOVAN [Suspect]
     Active Substance: VALSARTAN
     Indication: HYPERTENSION
     Dosage: 320 MG, QD
     Route: 048
  3. TEMERIT [Concomitant]
     Active Substance: NEBIVOLOL
     Indication: CARDIAC DISORDER
     Dosage: 2 UKN, QD
     Route: 065

REACTIONS (1)
  - Kidney infection [Not Recovered/Not Resolved]

NARRATIVE: CASE EVENT DATE: 20141006
